FAERS Safety Report 18207734 (Version 3)
Quarter: 2020Q3

REPORT INFORMATION
  Report Type: Spontaneous
  Country: US (occurrence: US)
  Receive Date: 20200828
  Receipt Date: 20200929
  Transmission Date: 20201103
  Serious: No
  Sender: FDA-Public Use
  Company Number: US-PFIZER INC-2020332306

PATIENT
  Age: 66 Year
  Sex: Female

DRUGS (2)
  1. IBRANCE [Suspect]
     Active Substance: PALBOCICLIB
     Dosage: UNK
  2. IBRANCE [Suspect]
     Active Substance: PALBOCICLIB
     Dosage: 100 MG, CYCLIC (DAILY X 21 WEEKS ON THEN 1 WEEK OFF)
     Route: 048

REACTIONS (7)
  - Stomatitis [Unknown]
  - Dizziness [Unknown]
  - Dysuria [Unknown]
  - Depressed mood [Unknown]
  - Pruritus [Unknown]
  - Somnolence [Unknown]
  - Fatigue [Unknown]
